FAERS Safety Report 13795729 (Version 4)
Quarter: 2018Q1

REPORT INFORMATION
  Report Type: Report from Study
  Country: US (occurrence: US)
  Receive Date: 20170726
  Receipt Date: 20180223
  Transmission Date: 20180508
  Serious: Yes (Other)
  Sender: FDA-Public Use
  Company Number: PHHY2017US108442

PATIENT
  Age: 77 Year
  Sex: Male

DRUGS (24)
  1. METFORMIN [Concomitant]
     Active Substance: METFORMIN HYDROCHLORIDE
     Dosage: 850 MG, TID
     Route: 065
     Dates: start: 20160428, end: 20161013
  2. JAKAFI [Suspect]
     Active Substance: RUXOLITINIB
     Dosage: 5 MG, BID
     Route: 048
     Dates: start: 20161028, end: 20161202
  3. ATENOLOL. [Concomitant]
     Active Substance: ATENOLOL
     Indication: HYPERTENSION
     Dosage: 100 MG, QD
     Route: 065
     Dates: start: 20140201
  4. FELODIPINE. [Concomitant]
     Active Substance: FELODIPINE
     Indication: HYPERTENSION
     Dosage: 10 MG, QD
     Route: 065
     Dates: start: 20140424
  5. HYDREA [Concomitant]
     Active Substance: HYDROXYUREA
     Dosage: 500 MG, TID 4 DAYS/WK BID 3 DAYS/WK
     Route: 065
     Dates: start: 20161217, end: 20170426
  6. HYZAAR [Concomitant]
     Active Substance: HYDROCHLOROTHIAZIDE\LOSARTAN POTASSIUM
     Indication: HYPERTENSION
     Dosage: 1 DF, QD
     Route: 065
     Dates: start: 20131119, end: 20161013
  7. NORCO [Concomitant]
     Active Substance: ACETAMINOPHEN\HYDROCODONE BITARTRATE
     Indication: PELVIC FRACTURE
     Dosage: 5/325 MG, PRN
     Route: 065
     Dates: start: 20141201, end: 20150212
  8. JAKAFI [Suspect]
     Active Substance: RUXOLITINIB
     Dosage: 10 MG, BID
     Route: 048
     Dates: start: 20161203, end: 20161216
  9. GLIPIZIDE. [Concomitant]
     Active Substance: GLIPIZIDE
     Indication: DIABETES MELLITUS
     Dosage: 5 MG, QD
     Route: 065
     Dates: start: 20140422
  10. HYDREA [Concomitant]
     Active Substance: HYDROXYUREA
     Dosage: 500 MG, BID 4 DAYS/WEEK + 500 MG TID ON M,W,F
     Route: 065
     Dates: start: 20151008, end: 20160809
  11. METFORMIN [Concomitant]
     Active Substance: METFORMIN HYDROCHLORIDE
     Indication: DIABETES MELLITUS
     Dosage: 1000 MG, BID
     Route: 065
     Dates: start: 20140102, end: 20160427
  12. ZOCOR [Concomitant]
     Active Substance: SIMVASTATIN
     Indication: HYPERLIPIDAEMIA
     Dosage: 20 MG, QD
     Route: 065
     Dates: start: 20141013, end: 20150212
  13. SIMVASTATIN. [Concomitant]
     Active Substance: SIMVASTATIN
     Indication: HYPERLIPIDAEMIA
     Dosage: 20 MG, QD
     Route: 065
     Dates: start: 20150213
  14. JAKAFI [Suspect]
     Active Substance: RUXOLITINIB
     Indication: POLYCYTHAEMIA VERA
     Dosage: 10 MG, BID
     Route: 048
     Dates: start: 20160928, end: 20161027
  15. FELODIPINE. [Concomitant]
     Active Substance: FELODIPINE
     Indication: ANGINA PECTORIS
  16. HYDREA [Concomitant]
     Active Substance: HYDROXYUREA
     Dosage: 500 MG, TID 4 DAYS/WK, BID 3 DAYS/WK
     Route: 065
     Dates: start: 20160810, end: 20160927
  17. HYDREA [Concomitant]
     Active Substance: HYDROXYUREA
     Dosage: 500 MG, TID 5 DAYS/WK, BID 2 DAYS/WK
     Route: 065
     Dates: start: 20170427
  18. METFORMIN [Concomitant]
     Active Substance: METFORMIN HYDROCHLORIDE
     Dosage: 1000 MG, BID
     Route: 065
     Dates: start: 20161014
  19. IMDUR [Concomitant]
     Active Substance: ISOSORBIDE MONONITRATE
     Indication: ANGINA PECTORIS
     Dosage: 30 MG, QD
     Route: 065
     Dates: start: 20140422
  20. ACTOS [Concomitant]
     Active Substance: PIOGLITAZONE HYDROCHLORIDE
     Indication: DIABETES MELLITUS
     Dosage: 15 MG, QD
     Route: 065
     Dates: start: 20140120
  21. ASA [Concomitant]
     Active Substance: ASPIRIN
     Indication: POLYCYTHAEMIA VERA
     Dosage: 81 MG, QD
     Route: 065
     Dates: start: 20060410
  22. HYDREA [Concomitant]
     Active Substance: HYDROXYUREA
     Indication: POLYCYTHAEMIA VERA
     Dosage: 500 MG, BID
     Route: 065
     Dates: start: 20140527, end: 20151007
  23. HYZAAR [Concomitant]
     Active Substance: HYDROCHLOROTHIAZIDE\LOSARTAN POTASSIUM
     Dosage: 1 DF, QID
     Route: 065
     Dates: start: 20170228
  24. KETOCONAZOLE. [Concomitant]
     Active Substance: KETOCONAZOLE
     Indication: FUNGAL INFECTION
     Dosage: SMALL AMOUNT, BID
     Route: 065
     Dates: start: 20140218, end: 20151112

REACTIONS (8)
  - Bradycardia [Recovered/Resolved]
  - Cough [Recovered/Resolved]
  - Haematocrit increased [Recovered/Resolved]
  - Haematocrit decreased [Recovered/Resolved]
  - Lymphocyte count decreased [Recovered/Resolved]
  - Bradycardia [Recovered/Resolved]
  - Haemoglobin decreased [Recovered/Resolved]
  - Lymphocyte count decreased [Recovered/Resolved]

NARRATIVE: CASE EVENT DATE: 20161013
